FAERS Safety Report 5991891-1 (Version None)
Quarter: 2008Q4

REPORT INFORMATION
  Report Type: 
  Country: None (occurrence: None)
  Receive Date: 20081211
  Receipt Date: 20080508
  Transmission Date: 20090506
  Serious: No
  Sender: FDA-Public Use
  Company Number: US-AMGEN-KDL278158

PATIENT
  Sex: Female

DRUGS (1)
  1. ENBREL [Suspect]
     Indication: RHEUMATOID ARTHRITIS
     Route: 058
     Dates: start: 20010301

REACTIONS (6)
  - ANAEMIA [None]
  - BLADDER CYST [None]
  - BLADDER DISORDER [None]
  - BLADDER PAIN [None]
  - URINARY BLADDER HAEMORRHAGE [None]
  - VIRAL UPPER RESPIRATORY TRACT INFECTION [None]
